FAERS Safety Report 21103524 (Version 2)
Quarter: 2022Q4

REPORT INFORMATION
  Report Type: Spontaneous
  Country: CA (occurrence: CA)
  Receive Date: 20220720
  Receipt Date: 20221020
  Transmission Date: 20230112
  Serious: Yes (Other)
  Sender: FDA-Public Use
  Company Number: CA-OCTA-HAPL01022CA

PATIENT
  Age: 61 Year
  Sex: Female
  Weight: 71.5 kg

DRUGS (4)
  1. RIASTAP [Suspect]
     Active Substance: FIBRINOGEN HUMAN
     Indication: Blood fibrinogen decreased
     Route: 042
     Dates: start: 20210413, end: 20210413
  2. CALCITRIOL [Concomitant]
     Active Substance: CALCITRIOL
     Indication: Product used for unknown indication
     Route: 048
     Dates: start: 20210317, end: 20210422
  3. CANDESARTAN [Concomitant]
     Active Substance: CANDESARTAN
     Indication: Product used for unknown indication
     Route: 048
     Dates: start: 20210412, end: 20210415
  4. TRANEXAMIC ACID [Concomitant]
     Active Substance: TRANEXAMIC ACID
     Indication: Product used for unknown indication

REACTIONS (9)
  - Allergic transfusion reaction [Recovered/Resolved]
  - Abdominal pain [Recovered/Resolved]
  - Allergic oedema [Recovered/Resolved]
  - Blood pressure decreased [Recovered/Resolved]
  - Burning sensation [Recovered/Resolved]
  - Drug hypersensitivity [Recovered/Resolved]
  - Hypoaesthesia [Recovered/Resolved]
  - Jaw disorder [Recovered/Resolved]
  - Swollen tongue [Recovered/Resolved]
